FAERS Safety Report 13676440 (Version 3)
Quarter: 2017Q3

REPORT INFORMATION
  Report Type: Spontaneous
  Country: US (occurrence: US)
  Receive Date: 20170622
  Receipt Date: 20170807
  Transmission Date: 20171127
  Serious: Yes (Other)
  Sender: FDA-Public Use
  Company Number: US-AMGEN-USASP2017092180

PATIENT
  Age: 53 Year
  Sex: Female
  Weight: 50.34 kg

DRUGS (6)
  1. PROCRIT [Suspect]
     Active Substance: ERYTHROPOIETIN
     Dosage: 8100 OR 8200 UNITS/ML
     Route: 058
     Dates: start: 20170614
  2. PROCRIT [Suspect]
     Active Substance: ERYTHROPOIETIN
     Indication: ANAEMIA
     Dosage: UNK
     Route: 058
     Dates: end: 2003
  3. IRON [Concomitant]
     Active Substance: IRON
     Indication: ANAEMIA
     Dosage: UNK
  4. PROCRIT [Suspect]
     Active Substance: ERYTHROPOIETIN
     Dosage: 10,000 UNITS/1ML, QWK AS NEEDED IF HEMOGLOBIN IS BELOW 10
     Route: 058
     Dates: start: 20170524
  5. EPOGEN [Suspect]
     Active Substance: ERYTHROPOIETIN
     Indication: ANAEMIA
     Dosage: UNK
     Route: 065
  6. KEPPRA [Concomitant]
     Active Substance: LEVETIRACETAM
     Indication: SEIZURE
     Dosage: UNK

REACTIONS (4)
  - Malaise [Not Recovered/Not Resolved]
  - Chronic kidney disease [Unknown]
  - Renal transplant [Unknown]
  - Underdose [Unknown]

NARRATIVE: CASE EVENT DATE: 2003
